FAERS Safety Report 6024498-0 (Version None)
Quarter: 2008Q4

REPORT INFORMATION
  Report Type: 
  Country: None (occurrence: None)
  Receive Date: 20081231
  Receipt Date: 20081022
  Transmission Date: 20090506
  Serious: No
  Sender: FDA-Public Use
  Company Number: US-BRISTOL-MYERS SQUIBB COMPANY-14336846

PATIENT
  Age: 61 Year
  Sex: Male
  Weight: 143 kg

DRUGS (5)
  1. ORENCIA [Suspect]
     Indication: RHEUMATOID ARTHRITIS
     Dosage: RECENT INFUSION IN SEP-2008.
     Route: 042
     Dates: start: 20080901
  2. PREDNISONE [Concomitant]
  3. NEURONTIN [Concomitant]
  4. PRILOSEC [Concomitant]
  5. METHOTREXATE [Concomitant]

REACTIONS (3)
  - MUSCLE SPASMS [None]
  - MUSCLE TWITCHING [None]
  - MYALGIA [None]
